FAERS Safety Report 14565976 (Version 5)
Quarter: 2018Q4

REPORT INFORMATION
  Report Type: Report from Study
  Country: US (occurrence: US)
  Receive Date: 20180223
  Receipt Date: 20181224
  Transmission Date: 20190204
  Serious: Yes (Other)
  Sender: FDA-Public Use
  Company Number: PHHY2018US029757

PATIENT
  Age: 47 Year
  Sex: Female

DRUGS (4)
  1. KRILL OIL [Concomitant]
     Active Substance: DIETARY SUPPLEMENT
     Indication: PRODUCT USED FOR UNKNOWN INDICATION
     Dosage: UNK
     Route: 065
     Dates: start: 20180228
  2. TROSPIUM CHLORIDE. [Concomitant]
     Active Substance: TROSPIUM CHLORIDE
     Indication: URINARY INCONTINENCE
     Dosage: UNK
     Route: 065
     Dates: start: 20180228
  3. GILENYA [Suspect]
     Active Substance: FINGOLIMOD HYDROCHLORIDE
     Indication: MULTIPLE SCLEROSIS
     Dosage: UNK UNK, QD
     Route: 048
  4. MAGNESIUM CITRATE. [Concomitant]
     Active Substance: MAGNESIUM CITRATE
     Indication: PRODUCT USED FOR UNKNOWN INDICATION
     Dosage: UNK
     Route: 065
     Dates: start: 20171129

REACTIONS (14)
  - Lymphocyte count decreased [Unknown]
  - Dry mouth [Unknown]
  - Tremor [Unknown]
  - White blood cell count decreased [Unknown]
  - Seborrhoeic keratosis [Unknown]
  - Borderline glaucoma [Unknown]
  - Cutaneous amyloidosis [Unknown]
  - Post-traumatic stress disorder [Unknown]
  - Nail disorder [Recovered/Resolved]
  - Obsessive-compulsive disorder [Unknown]
  - Lentigo [Unknown]
  - Acne [Unknown]
  - Nocturia [Unknown]
  - Melanocytic naevus [Unknown]

NARRATIVE: CASE EVENT DATE: 20171129
